FAERS Safety Report 9771104 (Version 1)
Quarter: 2013Q4

REPORT INFORMATION
  Report Type: Spontaneous
  Country: US (occurrence: US)
  Receive Date: 20131218
  Receipt Date: 20131218
  Transmission Date: 20140711
  Serious: No
  Sender: FDA-Public Use
  Company Number: US-VERTEX PHARMACEUTICALS INC-2013-011874

PATIENT
  Sex: 0

DRUGS (2)
  1. INCIVEK [Suspect]
     Indication: HEPATITIS C
     Dosage: UNK
     Dates: start: 20080925
  2. INTERFERON [Suspect]
     Indication: HEPATITIS C

REACTIONS (5)
  - Tooth loss [Unknown]
  - Oral pain [Unknown]
  - Mouth ulceration [Unknown]
  - Gingival disorder [Unknown]
  - Tooth fracture [Unknown]
